FAERS Safety Report 6377337-2 (Version None)
Quarter: 2009Q3

REPORT INFORMATION
  Report Type: 
  Country: None (occurrence: None)
  Receive Date: 20090925
  Receipt Date: 20090918
  Transmission Date: 20100115
  Serious: Yes (Other)
  Sender: FDA-Public Use
  Company Number: US-JNJFOC-20090906319

PATIENT
  Sex: Male
  Weight: 95.26 kg

DRUGS (27)
  1. FENTANYL TRANSDERMAL SYSTEM [Suspect]
     Indication: ARTHRALGIA
     Route: 062
  2. HYDROXYZINE [Concomitant]
     Indication: BIPOLAR DISORDER
     Route: 048
  3. LYRICA [Concomitant]
     Indication: FIBROMYALGIA
     Route: 048
  4. SINGULAIR [Concomitant]
     Indication: MULTIPLE ALLERGIES
     Route: 048
  5. ZOFRAN [Concomitant]
     Indication: NAUSEA
     Route: 048
  6. AURODEX [Concomitant]
     Indication: EAR DISORDER
     Dosage: 'OTIC'
     Route: 065
  7. SEROQUEL [Concomitant]
     Indication: BIPOLAR DISORDER
     Dosage: AT NIGHT
     Route: 048
  8. TOPAMAX [Concomitant]
     Indication: BIPOLAR DISORDER
     Route: 048
  9. NYSTATIN [Concomitant]
     Indication: ORAL INFECTION
     Route: 049
  10. FLONASE [Concomitant]
     Indication: MULTIPLE ALLERGIES
     Route: 045
  11. AMMONIUM LACTATE [Concomitant]
     Indication: SKIN CHAPPED
     Route: 061
  12. PROCHLORPERAZINE [Concomitant]
     Indication: NAUSEA
     Route: 065
  13. HYTRIN [Concomitant]
     Indication: NEPHROLITHIASIS
     Route: 048
  14. AMBIEN [Concomitant]
     Indication: SLEEP DISORDER
     Dosage: AT NIGHT
     Route: 048
  15. ACETIC ACID [Concomitant]
     Indication: EAR DISORDER
     Route: 065
  16. PRILOSEC [Concomitant]
     Indication: DYSPEPSIA
     Route: 048
  17. FAMOTIDINE [Concomitant]
     Indication: DYSPEPSIA
     Route: 048
  18. ASPIRIN [Concomitant]
     Indication: CARDIAC DISORDER
     Route: 048
  19. SYMBICORT [Concomitant]
     Indication: LUNG DISORDER
     Route: 055
  20. ERYTHROMYCIN [Concomitant]
     Indication: INFECTION
     Route: 065
  21. UNKNOWN MEDICATION [Concomitant]
     Indication: INFECTION
     Route: 065
  22. PROAIR HFA [Concomitant]
     Indication: ASTHMA
     Route: 055
  23. UROCIT-K [Concomitant]
     Indication: NEPHROLITHIASIS
     Route: 065
  24. FELODIPINE [Concomitant]
     Indication: BLOOD PRESSURE
     Route: 048
  25. PERCOCET [Concomitant]
     Indication: ARTHRITIS
     Dosage: 5/325 MG
     Route: 065
  26. REMERON [Concomitant]
     Indication: BIPOLAR DISORDER
     Route: 048
  27. FLEXERIL [Concomitant]
     Indication: MUSCULOSKELETAL PAIN
     Route: 048

REACTIONS (4)
  - APPLICATION SITE RASH [None]
  - BLOOD CREATININE INCREASED [None]
  - GLOMERULAR FILTRATION RATE DECREASED [None]
  - IRON DEFICIENCY [None]
